FAERS Safety Report 7620283-4 (Version None)
Quarter: 2011Q3

REPORT INFORMATION
  Report Type: 
  Country: None (occurrence: None)
  Receive Date: 20110719
  Receipt Date: 20110708
  Transmission Date: 20111222
  Serious: Yes (Other)
  Sender: FDA-Public Use
  Company Number: PHFR2011GB01889

PATIENT
  Sex: Female
  Weight: 72 kg

DRUGS (7)
  1. LITHIUM CARBONATE [Concomitant]
     Dosage: UNK
     Route: 048
  2. MIRTAZAPINE [Concomitant]
     Dosage: 30 MG, UNK
     Route: 048
  3. TASIGNA [Suspect]
     Indication: CHRONIC MYELOID LEUKAEMIA
     Dosage: 800 MG/DAY
     Route: 048
     Dates: start: 20110215
  4. METOCLOPRAMIDE [Concomitant]
     Indication: NAUSEA
     Dosage: 10 MG, TID
     Route: 048
     Dates: start: 20110215
  5. DIHYDROCODEINE BITARTRATE INJ [Concomitant]
     Dosage: 30 MG/DAY
  6. DIAZEPAM [Concomitant]
     Route: 048
  7. DULOXETIME HYDROCHLORIDE [Concomitant]
     Dosage: 60 MG, UNK
     Route: 048

REACTIONS (1)
  - ELECTROCARDIOGRAM QT PROLONGED [None]
